FAERS Safety Report 9426662 (Version 1)
Quarter: 2013Q3

REPORT INFORMATION
  Report Type: Spontaneous
  Country: US (occurrence: US)
  Receive Date: 20130730
  Receipt Date: 20130730
  Transmission Date: 20140515
  Serious: Yes (Disabling)
  Sender: FDA-Public Use
  Company Number: US-SANOFI-AVENTIS-2012SA049378

PATIENT
  Age: 56 Year
  Sex: Male
  Weight: 70.4 kg

DRUGS (1)
  1. AMBIEN [Suspect]
     Indication: INSOMNIA
     Route: 065

REACTIONS (2)
  - Arthralgia [Recovered/Resolved]
  - Feeling abnormal [Unknown]
